FAERS Safety Report 5396631-5 (Version None)
Quarter: 2007Q3

REPORT INFORMATION
  Report Type: 
  Country: None (occurrence: None)
  Receive Date: 20070725
  Receipt Date: 20070713
  Transmission Date: 20080115
  Serious: Yes (Hospitalization, Disabling)
  Sender: FDA-Public Use
  Company Number: A0652949A

PATIENT
  Age: 54 Year
  Sex: Female
  Weight: 80.9 kg

DRUGS (4)
  1. AVANDIA [Suspect]
     Dosage: 4MG PER DAY
     Route: 048
     Dates: start: 20050802, end: 20070523
  2. MICARDIS HCT [Concomitant]
  3. UNKNOWN [Concomitant]
  4. ASPIRIN [Concomitant]

REACTIONS (11)
  - ABDOMINAL PAIN UPPER [None]
  - ARRHYTHMIA [None]
  - ATRIOVENTRICULAR BLOCK COMPLETE [None]
  - CARDIAC ARREST [None]
  - CHEST PAIN [None]
  - EPISTAXIS [None]
  - EXERCISE TOLERANCE DECREASED [None]
  - LOSS OF CONSCIOUSNESS [None]
  - NAUSEA [None]
  - SYNCOPE [None]
  - VOMITING [None]
